FAERS Safety Report 7621384-7 (Version None)
Quarter: 2011Q3

REPORT INFORMATION
  Report Type: 
  Country: None (occurrence: None)
  Receive Date: 20110719
  Receipt Date: 20110705
  Transmission Date: 20111222
  Serious: Yes (Hospitalization)
  Sender: FDA-Public Use
  Company Number: JP-PFIZER INC-2011076234

PATIENT
  Age: 68 Year
  Sex: Female

DRUGS (8)
  1. LANSOPRAZOLE [Concomitant]
     Dosage: UNK
  2. LIPITOR [Concomitant]
     Dosage: UNK
  3. NOVORAPID [Concomitant]
     Dosage: UNK
  4. BISOPROLOL FUMARATE [Concomitant]
     Dosage: UNK
  5. PROMAC /JPN/ [Concomitant]
     Dosage: UNK
  6. ASPIRIN [Concomitant]
     Dosage: UNK
  7. MIGLITOL [Suspect]
     Indication: DIABETES MELLITUS
     Dosage: 50 MG, 3X/DAY
     Route: 048
     Dates: start: 20101124
  8. MAGMITT [Concomitant]
     Dosage: UNK

REACTIONS (4)
  - WEIGHT INCREASED [None]
  - HEPATIC FUNCTION ABNORMAL [None]
  - PROTEIN URINE [None]
  - CARDIAC FAILURE [None]
